FAERS Safety Report 12508468 (Version 1)
Quarter: 2016Q2

REPORT INFORMATION
  Report Type: Spontaneous
  Country: US (occurrence: US)
  Receive Date: 20160629
  Receipt Date: 20160629
  Transmission Date: 20160815
  Serious: Yes (Other)
  Sender: FDA-Public Use
  Company Number: US-BAYER-2016-122678

PATIENT
  Age: 69 Year
  Sex: Male

DRUGS (3)
  1. DABIGATRAN [Interacting]
     Active Substance: DABIGATRAN
     Dosage: 15 MG, BID
  2. ACETYLSALICYLIC ACID({=100 MG) [Suspect]
     Active Substance: ASPIRIN
     Dosage: 81 MG, QD
  3. FEIBA [Concomitant]
     Active Substance: ANTI-INHIBITOR COAGULANT COMPLEX
     Dosage: 50 U/KG (4500 UNITS)

REACTIONS (3)
  - Drug administration error [Recovering/Resolving]
  - Cerebral haemorrhage [Recovering/Resolving]
  - Labelled drug-drug interaction medication error [Recovering/Resolving]
